FAERS Safety Report 9264717 (Version 2)
Quarter: 2013Q2

REPORT INFORMATION
  Report Type: Spontaneous
  Country: US (occurrence: US)
  Receive Date: 20130501
  Receipt Date: 20130521
  Transmission Date: 20140414
  Serious: No
  Sender: FDA-Public Use
  Company Number: US-BIOGENIDEC-2013BI038891

PATIENT
  Age: 37 Year
  Sex: Female

DRUGS (3)
  1. TYSABRI [Suspect]
     Indication: MULTIPLE SCLEROSIS
     Route: 042
     Dates: start: 20081204, end: 20130328
  2. TECFIDERA [Concomitant]
     Dates: start: 20081204
  3. TECFIDERA [Concomitant]
     Dates: start: 20130507

REACTIONS (7)
  - Abasia [Recovered/Resolved]
  - Aphasia [Recovered/Resolved]
  - Mobility decreased [Recovered/Resolved]
  - Vein disorder [Not Recovered/Not Resolved]
  - Frustration [Unknown]
  - Poor venous access [Unknown]
  - Multiple sclerosis relapse [Recovered/Resolved]
